FAERS Safety Report 5846154-1 (Version None)
Quarter: 2008Q3

REPORT INFORMATION
  Report Type: 
  Country: None (occurrence: None)
  Receive Date: 20080813
  Receipt Date: 20080807
  Transmission Date: 20090109
  Serious: Yes (Hospitalization)
  Sender: FDA-Public Use
  Company Number: 86840

PATIENT
  Age: 60 Year
  Sex: Male
  Weight: 89.8122 kg

DRUGS (9)
  1. MINOXIDIL [Suspect]
     Indication: ALOPECIA
     Dosage: 1/2ML/BID/TOPICAL
     Route: 061
     Dates: start: 20080518, end: 20080519
  2. LOVENOX [Concomitant]
  3. MINOXIDIL [Concomitant]
  4. ZINC [Concomitant]
  5. SPIRIVA [Concomitant]
  6. ASPIRIN [Concomitant]
  7. VITAMIN D [Concomitant]
  8. MOTRIN [Concomitant]
  9. TUMS [Concomitant]

REACTIONS (15)
  - ARRHYTHMIA [None]
  - BLOOD GLUCOSE INCREASED [None]
  - BUNDLE BRANCH BLOCK RIGHT [None]
  - CHEST DISCOMFORT [None]
  - CHEST PAIN [None]
  - CHRONIC OBSTRUCTIVE PULMONARY DISEASE [None]
  - CONDITION AGGRAVATED [None]
  - DYSURIA [None]
  - ELECTROCARDIOGRAM ST-T CHANGE [None]
  - HEART RATE DECREASED [None]
  - HEART RATE INCREASED [None]
  - HEART RATE IRREGULAR [None]
  - HYPERTENSION [None]
  - NAUSEA [None]
  - SINUS CONGESTION [None]
